FAERS Safety Report 18238934 (Version 1)
Quarter: 2020Q3

REPORT INFORMATION
  Report Type: Spontaneous
  Country: FR (occurrence: FR)
  Receive Date: 20200907
  Receipt Date: 20200907
  Transmission Date: 20201103
  Serious: Yes (Other)
  Sender: FDA-Public Use
  Company Number: FR-JNJFOC-20200836526

PATIENT
  Age: 72 Year
  Sex: Female

DRUGS (3)
  1. SERESTA [Concomitant]
     Active Substance: OXAZEPAM
     Indication: ANXIETY
     Route: 048
     Dates: start: 20200612
  2. RISPERDAL [Suspect]
     Active Substance: RISPERIDONE
     Indication: NERVOUS SYSTEM DISORDER
     Route: 048
     Dates: start: 20200612, end: 20200707
  3. TERALITHE [Concomitant]
     Active Substance: LITHIUM CARBONATE
     Indication: THYMUS DISORDER
     Route: 048
     Dates: start: 20200617

REACTIONS (5)
  - Ocular hypertension [Recovering/Resolving]
  - Eye pain [Recovered/Resolved]
  - Off label use [Unknown]
  - Lacrimation increased [Recovered/Resolved]
  - Product use in unapproved indication [Unknown]

NARRATIVE: CASE EVENT DATE: 20200623
